FAERS Safety Report 25468649 (Version 1)
Quarter: 2025Q2

REPORT INFORMATION
  Report Type: Spontaneous
  Country: BR (occurrence: BR)
  Receive Date: 20250623
  Receipt Date: 20250623
  Transmission Date: 20250716
  Serious: Yes (Other)
  Sender: GLENMARK
  Company Number: BR-GLENMARK PHARMACEUTICALS-2025GMK101306

PATIENT
  Age: 3 Month

DRUGS (2)
  1. MOMETASONE [Suspect]
     Active Substance: MOMETASONE
     Indication: Rhinitis allergic
     Dosage: UNK, OD
     Route: 045
     Dates: start: 2022
  2. MOMETASONE [Suspect]
     Active Substance: MOMETASONE
     Indication: Adenoidal disorder
     Dosage: UNK, OD
     Route: 045
     Dates: start: 2022

REACTIONS (3)
  - Pneumonia [Unknown]
  - Product use issue [Unknown]
  - Product use in unapproved indication [Unknown]

NARRATIVE: CASE EVENT DATE: 20220101
